FAERS Safety Report 17287104 (Version 1)
Quarter: 2020Q1

REPORT INFORMATION
  Report Type: Spontaneous
  Country: AU (occurrence: AU)
  Receive Date: 20200120
  Receipt Date: 20200120
  Transmission Date: 20200409
  Serious: Yes (Other)
  Sender: FDA-Public Use
  Company Number: AU-SA-2020SA009771

PATIENT
  Age: 33 Year
  Sex: Male

DRUGS (7)
  1. RIFAMPICIN [Suspect]
     Active Substance: RIFAMPIN
     Indication: LICHEN PLANOPILARIS
     Dosage: 300 MG, BID
  2. FUSIDIC ACID [Suspect]
     Active Substance: FUSIDIC ACID
     Indication: LICHEN PLANOPILARIS
     Dosage: 500 MG, TID
  3. ZINC SULFATE. [Suspect]
     Active Substance: ZINC SULFATE
     Indication: LICHEN PLANOPILARIS
     Dosage: 125 MG, BID (LONG TERM)
     Route: 048
  4. CLINDAMYCIN HYDROCHLORIDE. [Suspect]
     Active Substance: CLINDAMYCIN HYDROCHLORIDE
     Indication: LICHEN PLANOPILARIS
     Dosage: 300 MG, BID
  5. ISOTRETINOIN. [Concomitant]
     Active Substance: ISOTRETINOIN
     Indication: ALOPECIA SCARRING
     Dosage: UNK
  6. FUSIDIC ACID [Suspect]
     Active Substance: FUSIDIC ACID
     Dosage: UNK
     Route: 061
  7. AZATHIOPRINE. [Suspect]
     Active Substance: AZATHIOPRINE
     Indication: LICHEN PLANOPILARIS
     Dosage: 2 MG/KG, QD

REACTIONS (1)
  - Colitis ulcerative [Unknown]
